FAERS Safety Report 7289061-2 (Version None)
Quarter: 2011Q1

REPORT INFORMATION
  Report Type: 
  Country: None (occurrence: None)
  Receive Date: 20110211
  Receipt Date: 20110208
  Transmission Date: 20110831
  Serious: Yes (Hospitalization, Other)
  Sender: FDA-Public Use
  Company Number: US-PFIZER INC-2010166988

PATIENT
  Sex: Female

DRUGS (6)
  1. AMBIEN [Concomitant]
     Indication: INSOMNIA
     Dosage: UNK
     Dates: start: 20060101, end: 20090706
  2. NORTRIPTYLINE [Concomitant]
     Indication: INSOMNIA
     Dosage: UNK
     Dates: start: 20080501
  3. NORTRIPTYLINE [Concomitant]
     Indication: DEPRESSION
  4. CHANTIX [Suspect]
     Indication: SMOKING CESSATION THERAPY
     Dosage: 0.5-1MG
     Route: 048
     Dates: start: 20070801, end: 20090706
  5. NORTRIPTYLINE [Concomitant]
     Indication: MIGRAINE
  6. DARVOCET-N 100 [Concomitant]
     Indication: ANALGESIC THERAPY
     Dosage: UNK
     Dates: start: 20050101

REACTIONS (9)
  - DEPRESSION [None]
  - AGGRESSION [None]
  - ANXIETY [None]
  - MENTAL DISORDER [None]
  - INTENTIONAL OVERDOSE [None]
  - ABNORMAL BEHAVIOUR [None]
  - EMOTIONAL DISTRESS [None]
  - SUICIDE ATTEMPT [None]
  - INSOMNIA [None]
